FAERS Safety Report 15361483 (Version 2)
Quarter: 2019Q2

REPORT INFORMATION
  Report Type: Spontaneous
  Country: US (occurrence: US)
  Receive Date: 20180907
  Receipt Date: 20190509
  Transmission Date: 20190711
  Serious: Yes (Other)
  Sender: FDA-Public Use
  Company Number: US-ASTRAZENECA-2018SF11884

PATIENT
  Sex: Male
  Weight: 72.6 kg

DRUGS (24)
  1. NOVOLOG [Concomitant]
     Active Substance: INSULIN ASPART
  2. CARISOPRODOL. [Concomitant]
     Active Substance: CARISOPRODOL
  3. METOPROLOL SUCCINATE. [Concomitant]
     Active Substance: METOPROLOL SUCCINATE
  4. ALPRAZOLAM. [Concomitant]
     Active Substance: ALPRAZOLAM
  5. HYZAAR [Concomitant]
     Active Substance: HYDROCHLOROTHIAZIDE\LOSARTAN POTASSIUM
  6. HUMALOG [Concomitant]
     Active Substance: INSULIN LISPRO
  7. PANTOPRAZOLE [Suspect]
     Active Substance: PANTOPRAZOLE
     Indication: GASTROOESOPHAGEAL REFLUX DISEASE
     Dosage: 40.0MG UNKNOWN
     Route: 065
     Dates: start: 2016
  8. METFORMIN [Concomitant]
     Active Substance: METFORMIN HYDROCHLORIDE
  9. CLONAZEPAM. [Concomitant]
     Active Substance: CLONAZEPAM
  10. ASPIRIN. [Concomitant]
     Active Substance: ASPIRIN
  11. ZANTAC [Concomitant]
     Active Substance: RANITIDINE HYDROCHLORIDE
  12. MAALOX ANTACID [Concomitant]
     Active Substance: ALUMINUM HYDROXIDE\DIMETHICONE\MAGNESIUM HYDROXIDE
  13. OMEPRAZOLE. [Suspect]
     Active Substance: OMEPRAZOLE
     Indication: GASTROOESOPHAGEAL REFLUX DISEASE
     Dosage: 20.0MG UNKNOWN
     Route: 065
     Dates: start: 2016
  14. CIALIS [Concomitant]
     Active Substance: TADALAFIL
  15. BUPROPION. [Concomitant]
     Active Substance: BUPROPION
  16. FLUTICASONE. [Concomitant]
     Active Substance: FLUTICASONE
  17. TUMS [Concomitant]
     Active Substance: CALCIUM CARBONATE
  18. NEXIUM [Suspect]
     Active Substance: ESOMEPRAZOLE MAGNESIUM
     Indication: GASTROOESOPHAGEAL REFLUX DISEASE
     Dosage: 40.0MG UNKNOWN
     Route: 048
     Dates: start: 2006, end: 2016
  19. ACETAMINOPHEN W/HYDROCODONE [Concomitant]
     Active Substance: ACETAMINOPHEN\HYDROCODONE
  20. FUROSEMIDE. [Concomitant]
     Active Substance: FUROSEMIDE
  21. DIAZEPAM. [Concomitant]
     Active Substance: DIAZEPAM
  22. SILDENAFIL. [Concomitant]
     Active Substance: SILDENAFIL
  23. VIAGRA [Concomitant]
     Active Substance: SILDENAFIL CITRATE
  24. AVODART [Concomitant]
     Active Substance: DUTASTERIDE

REACTIONS (1)
  - Chronic kidney disease [Not Recovered/Not Resolved]

NARRATIVE: CASE EVENT DATE: 2015
